FAERS Safety Report 5719885-1 (Version None)
Quarter: 2008Q2

REPORT INFORMATION
  Report Type: 
  Country: None (occurrence: None)
  Receive Date: 20080428
  Receipt Date: 20070718
  Transmission Date: 20081010
  Serious: No
  Sender: FDA-Public Use
  Company Number: A0654248A

PATIENT
  Age: 45 Year
  Sex: Female

DRUGS (6)
  1. ONDANSETRON HCL [Suspect]
     Dosage: 4MG TWICE PER DAY
     Route: 048
     Dates: start: 20070101
  2. MYSOLINE [Concomitant]
  3. FLEXERIL [Concomitant]
  4. ZYRTEC-D 12 HOUR [Concomitant]
  5. LISINOPRIL [Concomitant]
  6. MIRALAX [Concomitant]

REACTIONS (5)
  - BURNING SENSATION [None]
  - PARAESTHESIA [None]
  - PRURITUS [None]
  - PRURITUS GENERALISED [None]
  - RASH [None]
